FAERS Safety Report 10409990 (Version 3)
Quarter: 2014Q3

REPORT INFORMATION
  Report Type: Spontaneous
  Country: JP (occurrence: JP)
  Receive Date: 20140826
  Receipt Date: 20140916
  Transmission Date: 20150326
  Serious: Yes (Hospitalization)
  Sender: FDA-Public Use
  Company Number: JP-B.I. PHARMACEUTICALS,INC./RIDGEFIELD-2014-BI-24000NB

PATIENT
  Age: 54 Year
  Sex: Female

DRUGS (6)
  1. GILOTRIF [Suspect]
     Active Substance: AFATINIB
     Dosage: 30 MG
     Route: 048
     Dates: end: 20140813
  2. ACETAMINOPHEN. [Suspect]
     Active Substance: ACETAMINOPHEN
     Indication: CANCER PAIN
     Dosage: 4 G
     Route: 048
     Dates: end: 20140813
  3. LYRICA [Suspect]
     Active Substance: PREGABALIN
     Indication: CANCER PAIN
     Dosage: 150 MG
     Route: 048
     Dates: end: 20140813
  4. GILOTRIF [Suspect]
     Active Substance: AFATINIB
     Indication: NON-SMALL CELL LUNG CANCER
     Dosage: 40 MG
     Route: 048
     Dates: start: 20140513, end: 20140627
  5. NAIXAN [Suspect]
     Active Substance: NAPROXEN SODIUM
     Indication: CANCER PAIN
     Dosage: 300 MG
     Route: 048
     Dates: end: 20140813
  6. DECADRON [Suspect]
     Active Substance: DEXAMETHASONE
     Indication: CANCER PAIN
     Dosage: 2 MG
     Route: 048
     Dates: end: 20140813

REACTIONS (3)
  - Gastric ulcer [Recovered/Resolved]
  - Stomatitis [Recovered/Resolved]
  - Pharyngitis [Recovered/Resolved]

NARRATIVE: CASE EVENT DATE: 20140519
